FAERS Safety Report 9437951 (Version 3)
Quarter: 2014Q3

REPORT INFORMATION
  Report Type: Spontaneous
  Country: US (occurrence: US)
  Receive Date: 20130802
  Receipt Date: 20140818
  Transmission Date: 20150326
  Serious: Yes (Other)
  Sender: FDA-Public Use
  Company Number: US-BAYER-2013-093312

PATIENT
  Age: 31 Year
  Sex: Female
  Weight: 45 kg

DRUGS (1)
  1. MIRENA [Suspect]
     Active Substance: LEVONORGESTREL
     Indication: CONTRACEPTION
     Dosage: 20 MCG/24HR, CONT
     Route: 015
     Dates: start: 20070920, end: 20130425

REACTIONS (9)
  - Device difficult to use [None]
  - Bacterial vaginosis [None]
  - Infection [None]
  - Device issue [None]
  - Device dislocation [None]
  - Pain [None]
  - Embedded device [None]
  - Discomfort [None]
  - Device misuse [None]

NARRATIVE: CASE EVENT DATE: 201304
